FAERS Safety Report 22359337 (Version 1)
Quarter: 2023Q2

REPORT INFORMATION
  Report Type: Report from Study
  Country: DE (occurrence: DE)
  Receive Date: 20230524
  Receipt Date: 20230524
  Transmission Date: 20230722
  Serious: Yes (Other)
  Sender: FDA-Public Use
  Company Number: DE-JNJFOC-20230550048

PATIENT

DRUGS (1)
  1. IMBRUVICA [Suspect]
     Active Substance: IBRUTINIB
     Indication: Chronic lymphocytic leukaemia
     Route: 048

REACTIONS (10)
  - Gastrointestinal toxicity [Unknown]
  - Fatigue [Unknown]
  - Headache [Unknown]
  - Thrombocytopenia [Unknown]
  - Rash [Unknown]
  - Cardiovascular disorder [Unknown]
  - Hypertension [Unknown]
  - Diarrhoea [Unknown]
  - Arrhythmia [Unknown]
  - Muscle spasms [Unknown]
